FAERS Safety Report 5677870-2 (Version None)
Quarter: 2008Q1

REPORT INFORMATION
  Report Type: 
  Country: None (occurrence: None)
  Receive Date: 20080319
  Receipt Date: 20080310
  Transmission Date: 20080703
  Serious: Yes (Other)
  Sender: FDA-Public Use
  Company Number: CHPA2008US04410

PATIENT

DRUGS (2)
  1. THERAFLU COLD AND COUGH (NCH) (DEXTROMETHORPHAN, PHENIRAMINE, PHENYLEP [Suspect]
     Dosage: 1 DF, ONCE/SINGLE, ORAL
     Route: 048
     Dates: start: 20080309
  2. GLUCOPHAGE [Concomitant]

REACTIONS (2)
  - FALL [None]
  - MUSCULOSKELETAL DISORDER [None]
